FAERS Safety Report 7642872 (Version 2)
Quarter: 2013Q2

REPORT INFORMATION
  Report Type: Spontaneous
  Country: FR (occurrence: FR)
  Receive Date: 20101027
  Receipt Date: 20130423
  Transmission Date: 20140414
  Serious: Yes (Hospitalization, Other)
  Sender: FDA-Public Use
  Company Number: FR-ELI_LILLY_AND_COMPANY-FR201010003765

PATIENT
  Age: 46 Year
  Sex: Male
  Weight: 90 kg

DRUGS (2)
  1. ZYPREXA [Suspect]
     Indication: SCHIZOPHRENIA
     Dosage: 30 MG, DAILY (1/D)
     Route: 048
     Dates: start: 2002
  2. LOXAPAC [Concomitant]
     Dosage: UNK, UNKNOWN

REACTIONS (5)
  - Pituitary tumour benign [Recovered/Resolved]
  - Pituitary tumour benign [Recovered/Resolved]
  - Pituitary tumour benign [Unknown]
  - Fibrin abnormal [Unknown]
  - Prescribed overdose [Unknown]
